FAERS Safety Report 6408989-6 (Version None)
Quarter: 2009Q4

REPORT INFORMATION
  Report Type: 
  Country: None (occurrence: None)
  Receive Date: 20091021
  Receipt Date: 20091016
  Transmission Date: 20100525
  Serious: Yes (Death)
  Sender: FDA-Public Use
  Company Number: US-GENENTECH-292494

PATIENT
  Sex: Female

DRUGS (3)
  1. HERCEPTIN [Suspect]
     Indication: BREAST CANCER
     Dosage: UNK
     Route: 042
  2. TAXOTERE [Suspect]
     Indication: BREAST CANCER
     Dosage: UNK
     Route: 042
  3. CARBOPLATIN [Concomitant]
     Indication: BREAST CANCER
     Dosage: UNK

REACTIONS (1)
  - DEATH [None]
